FAERS Safety Report 20449910 (Version 1)
Quarter: 2022Q1

REPORT INFORMATION
  Report Type: Spontaneous
  Country: US (occurrence: US)
  Receive Date: 20220209
  Receipt Date: 20220209
  Transmission Date: 20220424
  Serious: No
  Sender: FDA-Public Use
  Company Number: US-TEVA-2022-US-2005984

PATIENT

DRUGS (1)
  1. CLONAZEPAM [Suspect]
     Active Substance: CLONAZEPAM
     Route: 065
     Dates: start: 2021

REACTIONS (5)
  - COVID-19 [Unknown]
  - Drug ineffective [Unknown]
  - Nightmare [Unknown]
  - Insomnia [Unknown]
  - Tremor [Unknown]

NARRATIVE: CASE EVENT DATE: 20211201
